FAERS Safety Report 5097078-1 (Version None)
Quarter: 2006Q3

REPORT INFORMATION
  Report Type: 
  Country: None (occurrence: None)
  Receive Date: 20060831
  Receipt Date: 20060821
  Transmission Date: 20061208
  Serious: Yes (Hospitalization, Other)
  Sender: FDA-Public Use
  Company Number: THYM-10414

PATIENT
  Age: 41 Year
  Sex: Female
  Weight: 60 kg

DRUGS (5)
  1. THYMOGLOBULIN [Suspect]
     Dosage: 30 MG QD IV
     Route: 042
     Dates: start: 20050114, end: 20050114
  2. THYMOGLOBULIN [Suspect]
     Dosage: 120 MG QD IV
     Route: 042
     Dates: start: 20050115, end: 20050118
  3. CYCLOSPORINE [Concomitant]
  4. CLONAZEPAM [Concomitant]
  5. FAMOTIDINE [Concomitant]

REACTIONS (11)
  - BLOOD LACTATE DEHYDROGENASE INCREASED [None]
  - DYSPNOEA [None]
  - ENGRAFTMENT SYNDROME [None]
  - FEBRILE NEUTROPENIA [None]
  - LUNG CONSOLIDATION [None]
  - LUNG INFILTRATION [None]
  - PERICARDIAL EFFUSION [None]
  - PLEURAL EFFUSION [None]
  - RALES [None]
  - RESPIRATORY DISTRESS [None]
  - RESPIRATORY FAILURE [None]
